FAERS Safety Report 5795562-6 (Version None)
Quarter: 2008Q2

REPORT INFORMATION
  Report Type: 
  Country: None (occurrence: None)
  Receive Date: 20080630
  Receipt Date: 20080627
  Transmission Date: 20081010
  Serious: Yes (Death, Hospitalization, Other)
  Sender: FDA-Public Use
  Company Number: PHHY2008PH11726

PATIENT
  Sex: Female

DRUGS (10)
  1. CLOZAPINE [Suspect]
     Indication: SCHIZOPHRENIA
     Dosage: 100 MG, QHS
     Route: 048
     Dates: start: 20080609
  2. CLOZAPINE [Suspect]
     Dosage: 300 MG/DAY
     Route: 048
  3. CLOZAPINE [Suspect]
     Dosage: 350 MG/DAY
     Dates: start: 20080617
  4. HALOPERIDOL [Concomitant]
     Dosage: 5 MG/DAY
  5. HALOPERIDOL [Concomitant]
     Dosage: 7.5 MG/DAY
  6. AKINETON [Concomitant]
     Dosage: 0.5 DF, QD
  7. AKINETON [Concomitant]
     Dosage: 1 DF, QD
  8. FLUOXETINE [Concomitant]
     Indication: TRICHOTILLOMANIA
  9. CIPROFLOXACIN [Concomitant]
     Indication: URINARY TRACT INFECTION
  10. ZOLPIDEM [Concomitant]
     Indication: INSOMNIA

REACTIONS (6)
  - MECHANICAL VENTILATION [None]
  - PNEUMONIA [None]
  - PULMONARY OEDEMA [None]
  - PYREXIA [None]
  - SEPSIS [None]
  - WHITE BLOOD CELL COUNT DECREASED [None]
